FAERS Safety Report 5097915-0 (Version None)
Quarter: 2006Q3

REPORT INFORMATION
  Report Type: 
  Country: None (occurrence: None)
  Receive Date: 20060905
  Receipt Date: 20060905
  Transmission Date: 20061208
  Serious: Yes (Life-Threatening, Hospitalization)
  Sender: FDA-Public Use
  Company Number: None

PATIENT
  Sex: Female
  Weight: 51.7 kg

DRUGS (1)
  1. RALOXIFEN 60 MG ELI LILLY AND CO. [Suspect]
     Dosage: 60 MG DAILY PO
     Route: 048

REACTIONS (1)
  - ARTERIAL THROMBOSIS LIMB [None]
